FAERS Safety Report 5385459-8 (Version None)
Quarter: 2007Q3

REPORT INFORMATION
  Report Type: 
  Country: None (occurrence: None)
  Receive Date: 20070712
  Receipt Date: 20070703
  Transmission Date: 20080115
  Serious: Yes (Hospitalization)
  Sender: FDA-Public Use
  Company Number: HQWYE913805JUL07

PATIENT
  Sex: Female

DRUGS (1)
  1. ETODOLAC [Suspect]
     Indication: ARTHRITIS
     Dosage: UNKNOWN
     Route: 048
     Dates: start: 20070404, end: 20070504

REACTIONS (2)
  - ANGINA PECTORIS [None]
  - CORONARY ARTERY STENOSIS [None]
